FAERS Safety Report 8669799 (Version 3)
Quarter: 2012Q4

REPORT INFORMATION
  Report Type: 
  Country: JP (occurrence: JP)
  Receive Date: 20120718
  Receipt Date: 20121220
  Transmission Date: 20130627
  Serious: Yes (Other)
  Sender: FDA-Public Use
  Company Number: JP-ELI_LILLY_AND_COMPANY-JP201207003446

PATIENT
  Age: 79 Year
  Sex: Female

DRUGS (5)
  1. EVISTA [Suspect]
     Indication: OSTEOPOROSIS
     Dosage: 60 mg, qd
     Route: 048
     Dates: end: 20120622
  2. CRESTOR [Concomitant]
  3. ONEALFA [Concomitant]
  4. TAIPROTON [Concomitant]
  5. ENBREL [Concomitant]
     Indication: RHEUMATOID ARTHRITIS

REACTIONS (1)
  - Liver disorder [Recovered/Resolved]
